FAERS Safety Report 19896101 (Version 1)
Quarter: 2021Q3

REPORT INFORMATION
  Report Type: Spontaneous
  Country: US (occurrence: US)
  Receive Date: 20210929
  Receipt Date: 20210929
  Transmission Date: 20211014
  Serious: No
  Sender: FDA-Public Use
  Company Number: US-GLAXOSMITHKLINE-US2021202097

PATIENT
  Age: 59 Year
  Sex: Female

DRUGS (1)
  1. TRELEGY ELLIPTA [Suspect]
     Active Substance: FLUTICASONE FUROATE\UMECLIDINIUM BROMIDE\VILANTEROL TRIFENATATE
     Indication: CHRONIC OBSTRUCTIVE PULMONARY DISEASE
     Dosage: UNK,TRELEGY ELLIPTA 100/62.5/25MCG INH 30

REACTIONS (5)
  - Dyspnoea [Not Recovered/Not Resolved]
  - Gastric disorder [Unknown]
  - Muscle spasms [Unknown]
  - Product dose omission issue [Unknown]
  - Palpitations [Unknown]

NARRATIVE: CASE EVENT DATE: 20210902
